FAERS Safety Report 11434428 (Version 2)
Quarter: 2015Q3

REPORT INFORMATION
  Report Type: Spontaneous
  Country: US (occurrence: US)
  Receive Date: 20150831
  Receipt Date: 20150910
  Transmission Date: 20151125
  Serious: Yes (Hospitalization, Other)
  Sender: FDA-Public Use
  Company Number: US-PFIZER INC-2015134899

PATIENT
  Age: 71 Year
  Sex: Male
  Weight: 84 kg

DRUGS (16)
  1. LYRICA [Suspect]
     Active Substance: PREGABALIN
     Indication: GASTROINTESTINAL PAIN
     Dosage: 75 MG, 1X/DAY (AT NIGHT)
     Route: 048
     Dates: end: 201506
  2. MIRALAX [Concomitant]
     Active Substance: POLYETHYLENE GLYCOL 3350
     Indication: BOWEL MOVEMENT IRREGULARITY
     Dosage: 17 G MIXED IN LIQUID, THREE TO FOUR TIMES A WEEK)
  3. LYRICA [Suspect]
     Active Substance: PREGABALIN
     Indication: INSOMNIA
  4. LYRICA [Suspect]
     Active Substance: PREGABALIN
     Indication: SPINAL PAIN
     Dosage: 75 MG, 1X/DAY
     Route: 048
     Dates: start: 20150413
  5. LYRICA [Suspect]
     Active Substance: PREGABALIN
     Indication: ARTHRITIS
  6. FENTANYL TRANSDERMAL SYSTEM [Concomitant]
     Active Substance: FENTANYL
     Dosage: 50 MG, UNK
     Dates: start: 201402
  7. OXYCODONE [Concomitant]
     Active Substance: OXYCODONE
     Indication: PAIN
     Dosage: 20 MG, AS NEEDED (EVERY 4-6 HOURS)
     Route: 048
     Dates: start: 201402
  8. ATENOLOL. [Concomitant]
     Active Substance: ATENOLOL
     Indication: CARDIAC DISORDER
     Dosage: 25 MG, 1X/DAY
  9. LISINOPRIL. [Concomitant]
     Active Substance: LISINOPRIL
     Indication: BLOOD PRESSURE ABNORMAL
     Dosage: 5 MG, 1X/DAY
  10. LYRICA [Suspect]
     Active Substance: PREGABALIN
     Indication: INTERVERTEBRAL DISC DEGENERATION
     Dosage: 50 MG, 1X/DAY (AT NIGHT, BEFORE BEDTIME)
     Route: 048
     Dates: start: 20150817
  11. FENTANYL TRANSDERMAL SYSTEM [Concomitant]
     Active Substance: FENTANYL
     Indication: INTERVERTEBRAL DISC DEGENERATION
     Dosage: 25MCG/HR
  12. LYRICA [Suspect]
     Active Substance: PREGABALIN
     Indication: PAIN
  13. AMLODIPINE [Concomitant]
     Active Substance: AMLODIPINE BESYLATE
     Indication: BLOOD PRESSURE ABNORMAL
     Dosage: 5 MG, 1X/DAY
  14. EFFIENT [Concomitant]
     Active Substance: PRASUGREL HYDROCHLORIDE
     Dosage: UNK
     Dates: start: 2014
  15. LYRICA [Suspect]
     Active Substance: PREGABALIN
     Indication: BURNING SENSATION
     Dosage: UNK
  16. COLACE [Concomitant]
     Active Substance: DOCUSATE SODIUM
     Indication: BOWEL MOVEMENT IRREGULARITY
     Dosage: 100 MG, 1X/DAY

REACTIONS (12)
  - Depression [Unknown]
  - Arterial occlusive disease [Unknown]
  - Emotional disorder [Unknown]
  - Decreased appetite [Unknown]
  - Weight decreased [Unknown]
  - Cardiac disorder [Recovered/Resolved]
  - Spinal osteoarthritis [Unknown]
  - Activities of daily living impaired [Unknown]
  - Drug ineffective for unapproved indication [Unknown]
  - Chest pain [Unknown]
  - General physical health deterioration [Unknown]
  - Pain [Unknown]

NARRATIVE: CASE EVENT DATE: 2015
